FAERS Safety Report 12549968 (Version 2)
Quarter: 2016Q3

REPORT INFORMATION
  Report Type: Spontaneous
  Country: FR (occurrence: FR)
  Receive Date: 20160712
  Receipt Date: 20160714
  Transmission Date: 20161109
  Serious: Yes (Death)
  Sender: FDA-Public Use
  Company Number: FR-JNJFOC-20160705066

PATIENT
  Age: 82 Year
  Sex: Female

DRUGS (12)
  1. DEROXAT [Concomitant]
     Active Substance: PAROXETINE HYDROCHLORIDE
     Indication: DEPRESSION
     Dosage: 20 MG/10 ML, DRINKABLE SUSPENSION 20 MG IN THE MORNING
     Route: 065
     Dates: start: 20160424, end: 20160617
  2. STILNOX [Concomitant]
     Active Substance: ZOLPIDEM TARTRATE
     Indication: INSOMNIA
     Dosage: 0.5 IN THE EVENING
     Route: 065
     Dates: end: 20160410
  3. AMLOR [Concomitant]
     Active Substance: AMLODIPINE BESYLATE
     Indication: HYPERTENSION
     Dosage: 1 IN THE MORNING
     Route: 065
     Dates: start: 20160424, end: 20160617
  4. RISPERDAL [Suspect]
     Active Substance: RISPERIDONE
     Indication: DEMENTIA
     Route: 048
     Dates: start: 20160410, end: 20160617
  5. TIAPRIDAL [Suspect]
     Active Substance: TIAPRIDE HYDROCHLORIDE
     Indication: DEMENTIA
     Route: 048
     Dates: start: 20160410, end: 20160617
  6. STILNOX [Concomitant]
     Active Substance: ZOLPIDEM TARTRATE
     Indication: INSOMNIA
     Dosage: 1 IN THE EVENING
     Route: 065
     Dates: start: 20160424, end: 20160617
  7. TIAPRIDAL [Suspect]
     Active Substance: TIAPRIDE HYDROCHLORIDE
     Indication: DEMENTIA
     Dosage: DRINKABLE SOLUTION IN DROPS 10 MG IN THE MORNING, 10 MG IN THE EVENING
     Route: 048
     Dates: end: 20160410
  8. RISPERDAL [Suspect]
     Active Substance: RISPERIDONE
     Indication: DEMENTIA
     Dosage: 1 MG/ML, DRINKABLE SOLUTION 1 MG IN THE MORNING, 0.5 MG IN THE EVENING
     Route: 048
     Dates: end: 20160410
  9. TRIATEC [Concomitant]
     Active Substance: RAMIPRIL
     Indication: HYPERTENSION
     Dosage: 1 IN THE MORNING
     Route: 065
     Dates: start: 20160424, end: 20160617
  10. TRIATEC [Concomitant]
     Active Substance: RAMIPRIL
     Indication: HYPERTENSION
     Dosage: 1 IN THE MORNING
     Route: 065
     Dates: end: 20160410
  11. TIAPRIDAL [Suspect]
     Active Substance: TIAPRIDE HYDROCHLORIDE
     Indication: DEMENTIA
     Dosage: 25 MG IN THE MORNING, 25 MG AT NOON, 25 MG IN THE EVENING AND 25 MG AT BEDTIME
     Route: 048
     Dates: start: 20160613, end: 20160617
  12. TIAPRIDAL [Suspect]
     Active Substance: TIAPRIDE HYDROCHLORIDE
     Indication: DEMENTIA
     Route: 048

REACTIONS (12)
  - Somnolence [Fatal]
  - Melaena [Unknown]
  - Overdose [Unknown]
  - Pneumonia aspiration [Fatal]
  - Feeding disorder [Fatal]
  - Off label use [Unknown]
  - Acute kidney injury [Fatal]
  - Inflammation [Fatal]
  - Incorrect dose administered [Unknown]
  - Hospitalisation [Unknown]
  - Dehydration [Unknown]
  - Productive cough [Fatal]

NARRATIVE: CASE EVENT DATE: 201605
